FAERS Safety Report 5268064-3 (Version None)
Quarter: 2007Q1

REPORT INFORMATION
  Report Type: 
  Country: None (occurrence: None)
  Receive Date: 20070316
  Receipt Date: 20070316
  Transmission Date: 20070707
  Serious: Yes (Hospitalization)
  Sender: FDA-Public Use
  Company Number: None

PATIENT
  Age: 26 Year
  Sex: Female
  Weight: 77 kg

DRUGS (2)
  1. ALESSE [Suspect]
     Indication: CONTRACEPTION
     Dosage: QDAY PO
     Route: 048
  2. OMNICEF [Concomitant]

REACTIONS (3)
  - DEEP VEIN THROMBOSIS [None]
  - HYPOAESTHESIA [None]
  - PARAESTHESIA [None]
